FAERS Safety Report 6910754-8 (Version None)
Quarter: 2010Q3

REPORT INFORMATION
  Report Type: 
  Country: None (occurrence: None)
  Receive Date: 20100806
  Receipt Date: 20100726
  Transmission Date: 20110219
  Serious: Yes (Other)
  Sender: FDA-Public Use
  Company Number: US-PFIZER INC-2010080530

PATIENT
  Sex: Female
  Weight: 75.283 kg

DRUGS (20)
  1. GENOTROPIN [Suspect]
     Indication: HYPOPITUITARISM
     Dosage: 0.4 MG, DAILY
     Route: 058
     Dates: start: 20091201
  2. MAXAIR [Concomitant]
     Dosage: UNK
  3. ASTELIN [Concomitant]
     Dosage: FOUR SPRAYS EACH NOSTRIL DAILY
     Route: 045
  4. LEXAPRO [Concomitant]
     Dosage: 20 MG, 1X/DAY
  5. LEXAPRO [Concomitant]
  6. KLONOPIN [Concomitant]
     Dosage: 1 MG, 1X/DAY
  7. KLONOPIN [Concomitant]
  8. SYNTHROID [Concomitant]
     Dosage: 125 UG, 1X/DAY
  9. SYNTHROID [Concomitant]
     Dosage: 125 UG, UNK
  10. IMITREX [Concomitant]
     Dosage: 50 MG, AS NEEDED
     Route: 048
  11. IMITREX [Concomitant]
     Dosage: FREQUENCY: AS NEEDED,
     Route: 048
  12. VITAMIN D [Concomitant]
     Dosage: 50,000 UNITS PER WEEK
  13. VITAMIN D [Concomitant]
     Dosage: 100,000 UNITS WEEKLY
     Dates: start: 20100319
  14. CRESTOR [Concomitant]
     Dosage: 10 MG, 1X/DAY
  15. CRESTOR [Concomitant]
  16. MULTI-VITAMINS [Concomitant]
     Dosage: UNK
  17. METANX [Concomitant]
     Dosage: 3 DAYS/WEEK
  18. REGLAN [Concomitant]
     Dosage: FREQUENCY: 3X/DAY AS NEEDED,
  19. METFORMIN [Concomitant]
  20. VIACTIV /USA/ [Concomitant]
     Dosage: 500 MG, 2X/DAY

REACTIONS (4)
  - ENDOMETRIAL ATROPHY [None]
  - ENDOMETRIAL DISORDER [None]
  - POSTMENOPAUSAL HAEMORRHAGE [None]
  - PREMATURE MENOPAUSE [None]
